FAERS Safety Report 9770245 (Version 2)
Quarter: 2014Q1

REPORT INFORMATION
  Report Type: Spontaneous
  Country: IT (occurrence: IT)
  Receive Date: 20131218
  Receipt Date: 20140117
  Transmission Date: 20141002
  Serious: Yes (Death, Hospitalization)
  Sender: FDA-Public Use
  Company Number: IT-B.I. PHARMACEUTICALS,INC./RIDGEFIELD-2013-BI-42443IT

PATIENT
  Age: 81 Year
  Sex: Female

DRUGS (9)
  1. PRADAXA [Suspect]
     Indication: THROMBOSIS PROPHYLAXIS
     Dosage: 220 MG
     Route: 048
     Dates: start: 20130601, end: 20131201
  2. ATORVASTATIN [Concomitant]
  3. BISOPROLOL HEMIFUMARATE [Concomitant]
  4. JANUVIA [Concomitant]
  5. SOLOSA [Concomitant]
  6. LANOXIN [Concomitant]
  7. ALDACTONE [Concomitant]
  8. LASIX [Concomitant]
  9. TRIATEC [Concomitant]

REACTIONS (2)
  - Cerebral infarction [Fatal]
  - Cerebral thrombosis [Fatal]
